FAERS Safety Report 10228535 (Version 1)
Quarter: 2014Q2

REPORT INFORMATION
  Report Type: Spontaneous
  Country: CN (occurrence: None)
  Receive Date: 20140502
  Receipt Date: 20140502
  Transmission Date: 20141212
  Serious: Yes (Other)
  Sender: FDA-Public Use
  Company Number: 2014-CN-000370

PATIENT
  Sex: 0

DRUGS (5)
  1. ASPARAGINASE [Suspect]
     Indication: ACUTE LYMPHOCYTIC LEUKAEMIA
     Route: 030
  2. DAUNORUBICIN (DAUNORUBICIN HYDROCHLORIDE) INFUSION [Concomitant]
  3. DEXAMETHASONE (DEXAMETHASONE) [Concomitant]
  4. PREDNISONE (PREDNISONE) [Concomitant]
  5. VINCRISTINE (VINCRISTINE) INJECTION [Concomitant]

REACTIONS (1)
  - Pancreatitis [None]
